FAERS Safety Report 9867917 (Version 2)
Quarter: 2014Q1

REPORT INFORMATION
  Report Type: Spontaneous
  Country: JP (occurrence: JP)
  Receive Date: 20140204
  Receipt Date: 20140217
  Transmission Date: 20141002
  Serious: Yes (Hospitalization)
  Sender: FDA-Public Use
  Company Number: PHHY2014JP012698

PATIENT
  Age: 81 Year
  Sex: Female

DRUGS (1)
  1. RIVASTIGMIN [Suspect]
     Indication: DEMENTIA
     Dosage: UNK UKN, UNK
     Route: 062

REACTIONS (2)
  - Dysphagia [Unknown]
  - Off label use [Unknown]
